FAERS Safety Report 5255795-4 (Version None)
Quarter: 2007Q1

REPORT INFORMATION
  Report Type: 
  Country: None (occurrence: None)
  Receive Date: 20070228
  Receipt Date: 20070216
  Transmission Date: 20070707
  Serious: Yes (Other)
  Sender: FDA-Public Use
  Company Number: 2007AP000179

PATIENT
  Sex: Male

DRUGS (1)
  1. PAROXETINE HCL [Suspect]
     Dates: start: 20030717, end: 20050101

REACTIONS (7)
  - AGGRESSION [None]
  - AGITATION [None]
  - ANGER [None]
  - DEPRESSED MOOD [None]
  - DEPRESSION [None]
  - DRUG WITHDRAWAL SYNDROME [None]
  - IRRITABILITY [None]
